FAERS Safety Report 4867074-5 (Version None)
Quarter: 2005Q4

REPORT INFORMATION
  Report Type: 
  Country: None (occurrence: None)
  Receive Date: 20051221
  Receipt Date: 20051216
  Transmission Date: 20060501
  Serious: Yes (Death, Life-Threatening)
  Sender: FDA-Public Use
  Company Number: HQWYE072116DEC05

PATIENT
  Age: 58 Year
  Sex: Male

DRUGS (14)
  1. INIPOMP (PANTOPRAZOLE, INJECTION) [Suspect]
     Dosage: 40 MG - FREQUENCY UNSPECIFIED INTRAVENOUS
     Route: 042
     Dates: start: 20050912
  2. CALCIPARINE [Suspect]
     Dosage: 0.2 ML 2X PER 1 DAY SC
     Route: 058
     Dates: start: 20050912
  3. INVANZ (ERTAPENEM SODIUM, ) [Suspect]
     Indication: ENTEROBACTER INFECTION
     Dosage: 1 G 1X PER 1 DAY INTRAVENOUS
     Route: 042
     Dates: start: 20050918, end: 20050921
  4. OFLOXACIN [Suspect]
     Indication: ENTEROBACTER INFECTION
     Dosage: 200 MG 1 X PER 1 DAY INTRAVENOUS
     Route: 042
     Dates: start: 20050905
  5. NOVORAPID (INSULIN ASPART) [Concomitant]
  6. METOPROLOL TARTRATE [Concomitant]
  7. ATARAX [Concomitant]
  8. STILNOX (ZOLPIDEM) [Concomitant]
  9. RAMIPRIL [Concomitant]
  10. UN-ALFA (ALFACALCIDOL) [Concomitant]
  11. CALCIDIA (CALCIUM CARBONATE) [Concomitant]
  12. ARANESP [Concomitant]
  13. NICARDIPINE HCL [Concomitant]
  14. TIENAM (CILASTATIN/IMIPENEM) [Concomitant]

REACTIONS (16)
  - ANOXIC ENCEPHALOPATHY [None]
  - BLOOD CREATININE INCREASED [None]
  - BLOOD POTASSIUM INCREASED [None]
  - BRAIN OEDEMA [None]
  - CARDIAC ARREST [None]
  - CEREBRAL ATROPHY [None]
  - COMA [None]
  - CONVULSION [None]
  - CREATININE RENAL CLEARANCE DECREASED [None]
  - DIABETES MELLITUS INADEQUATE CONTROL [None]
  - LACUNAR INFARCTION [None]
  - LEG AMPUTATION [None]
  - METABOLIC ACIDOSIS [None]
  - MULTI-ORGAN FAILURE [None]
  - RESPIRATORY ARREST [None]
  - VENTRICULAR ARRHYTHMIA [None]
